FAERS Safety Report 7820089-7 (Version None)
Quarter: 2011Q4

REPORT INFORMATION
  Report Type: 
  Country: None (occurrence: None)
  Receive Date: 20111018
  Receipt Date: 20111013
  Transmission Date: 20120403
  Serious: Yes (Other)
  Sender: FDA-Public Use
  Company Number: US-PFIZER INC-2011245464

PATIENT
  Sex: Female

DRUGS (1)
  1. LYRICA [Suspect]
     Indication: FIBROMYALGIA
     Dosage: UNK, 2X/DAY
     Route: 048
     Dates: start: 20110301, end: 20110101

REACTIONS (13)
  - FATIGUE [None]
  - DEPRESSED MOOD [None]
  - MALAISE [None]
  - FEELING ABNORMAL [None]
  - DECREASED APPETITE [None]
  - HYPOPHAGIA [None]
  - ANXIETY [None]
  - ASTHENIA [None]
  - WEIGHT INCREASED [None]
  - CHILLS [None]
  - WEIGHT DECREASED [None]
  - INCREASED APPETITE [None]
  - DRUG EFFECT DECREASED [None]
